FAERS Safety Report 6206866-7 (Version None)
Quarter: 2009Q2

REPORT INFORMATION
  Report Type: 
  Country: None (occurrence: None)
  Receive Date: 20090528
  Receipt Date: 20090519
  Transmission Date: 20091009
  Serious: Yes (Other)
  Sender: FDA-Public Use
  Company Number: FR-ASTRAZENECA-2008CG01262

PATIENT
  Age: 8 Day
  Sex: Female
  Weight: 2.2 kg

DRUGS (6)
  1. NEXIUM [Suspect]
     Indication: GASTROOESOPHAGEAL REFLUX DISEASE
     Route: 048
     Dates: start: 20080817, end: 20080825
  2. NEXIUM [Suspect]
     Route: 048
     Dates: start: 20080825
  3. UVESTEROL [Concomitant]
     Dates: start: 20080801, end: 20080801
  4. MOTILIUM [Concomitant]
     Dates: start: 20080817
  5. POLYSILANE GEL [Concomitant]
     Dates: start: 20080817
  6. GAVISCON [Concomitant]
     Dates: start: 20080819

REACTIONS (1)
  - HYPERCALCAEMIA [None]
